FAERS Safety Report 7108817-X (Version None)
Quarter: 2010Q4

REPORT INFORMATION
  Report Type: 
  Country: None (occurrence: None)
  Receive Date: 20101117
  Receipt Date: 20101105
  Transmission Date: 20110411
  Serious: Yes (Other)
  Sender: FDA-Public Use
  Company Number: B0672720A

PATIENT
  Sex: Male

DRUGS (4)
  1. DERMOVAT [Suspect]
     Route: 065
  2. BETAPRED [Concomitant]
  3. DUODERM [Concomitant]
  4. EMOLLIENT [Concomitant]

REACTIONS (2)
  - HYPOMANIA [None]
  - RESTLESSNESS [None]
